FAERS Safety Report 9908241 (Version 1)
Quarter: 2014Q1

REPORT INFORMATION
  Report Type: Spontaneous
  Country: US (occurrence: US)
  Receive Date: 20140219
  Receipt Date: 20140219
  Transmission Date: 20141002
  Serious: Yes (Hospitalization)
  Sender: FDA-Public Use
  Company Number: US-009507513-1402USA008331

PATIENT
  Sex: Male

DRUGS (1)
  1. SITAGLIPTIN PHOSPHATE [Suspect]
     Indication: DIABETES MELLITUS
     Dosage: UNK
     Route: 048

REACTIONS (2)
  - Hypoglycaemia [Recovered/Resolved]
  - Dehydration [Recovered/Resolved]
